FAERS Safety Report 8091705-2 (Version None)
Quarter: 2012Q1

REPORT INFORMATION
  Report Type: 
  Country: None (occurrence: None)
  Receive Date: 20120131
  Receipt Date: 20120124
  Transmission Date: 20120608
  Serious: No
  Sender: FDA-Public Use
  Company Number: US-PFIZER INC-2012001246

PATIENT
  Sex: Female

DRUGS (21)
  1. REVATIO [Suspect]
     Dosage: UNK
     Route: 048
     Dates: end: 20111107
  2. LASIX [Concomitant]
     Indication: OEDEMA
     Dosage: 20 MG, 1X/DAY
     Route: 048
  3. IMITREX [Concomitant]
     Dosage: 25 MG, UNK
  4. PROPRANOLOL [Concomitant]
     Dosage: 40 MG, 2X/DAY
     Route: 048
  5. SPIRONOLACTONE [Concomitant]
     Dosage: 25 MG, 2X/DAY
     Route: 048
  6. COSOPT [Concomitant]
     Dosage: 2%-0.5%
  7. PRILOSEC [Concomitant]
     Dosage: 20 MG, 1X/DAY
     Route: 048
  8. CALCIUM [Concomitant]
     Dosage: UNK
  9. LYSINE [Concomitant]
     Dosage: 500 MG, UNK
  10. GLUCOSAMINE CHONDROITIN PM [Concomitant]
     Dosage: UNK
  11. ASCORBIC ACID [Concomitant]
     Dosage: UNK
  12. VITAMIN D [Concomitant]
     Dosage: UNK
  13. REVATIO [Suspect]
     Indication: PULMONARY ARTERIAL HYPERTENSION
     Dosage: 20 MG, 3X/DAY
     Dates: start: 20110920, end: 20111001
  14. CELEBREX [Concomitant]
     Dosage: 200 MG, UNK
  15. ALPHAGAN [Concomitant]
     Dosage: 0.15 %, UNK
  16. OMEGA 3-6-9 [Concomitant]
     Dosage: 400MG-400MG-200 MG
  17. ACETYLSALICYLIC ACID [Concomitant]
     Dosage: 81 MG, 1X/DAY
     Route: 048
  18. BONIVA [Concomitant]
     Dosage: 150 MG, UNK
  19. DIGOXIN [Concomitant]
     Dosage: 125 UG, 1X/DAY
     Route: 048
  20. LEVOXYL [Concomitant]
     Dosage: UNK
  21. TYLENOL-500 [Concomitant]
     Indication: PAIN
     Dosage: 650 MG, UNK

REACTIONS (5)
  - FREQUENT BOWEL MOVEMENTS [None]
  - ABDOMINAL PAIN [None]
  - ABDOMINAL DISTENSION [None]
  - DIARRHOEA [None]
  - POLLAKIURIA [None]
